FAERS Safety Report 8770945 (Version 1)
Quarter: 2012Q4

REPORT INFORMATION
  Report Type: 
  Country: US (occurrence: US)
  Receive Date: 20120906
  Receipt Date: 20120906
  Transmission Date: 20130627
  Serious: Yes (Other)
  Sender: FDA-Public Use
  Company Number: US-BAYER-2012-091264

PATIENT
  Age: 35 Year
  Sex: Female

DRUGS (8)
  1. YASMIN [Suspect]
     Indication: CONTRACEPTION
  2. FLUTICASONE [Concomitant]
     Dosage: 50 ?g, UNK
     Route: 048
     Dates: start: 20120327
  3. AZITHROMYCIN [Concomitant]
     Dosage: 250 mg, UNK
     Route: 048
     Dates: start: 20120327
  4. HYDROCODONE W/APAP [Concomitant]
     Dosage: 5-325 mg
     Route: 048
     Dates: start: 20120411
  5. CIPROFLOXACIN [Concomitant]
     Dosage: 250 mg, BID 7 days
     Route: 048
     Dates: start: 20120413
  6. SERTRALINE [Concomitant]
     Dosage: 100 mg, UNK
     Route: 048
     Dates: start: 20120430
  7. KEFLEX [Concomitant]
     Dosage: UNK
  8. IBUPROFEN [Concomitant]
     Indication: DISCOMFORT

REACTIONS (1)
  - Thrombophlebitis superficial [None]
